FAERS Safety Report 4706634-9 (Version None)
Quarter: 2005Q3

REPORT INFORMATION
  Report Type: 
  Country: None (occurrence: None)
  Receive Date: 20050705
  Receipt Date: 20050624
  Transmission Date: 20060218
  Serious: Yes (Life-Threatening)
  Sender: FDA-Public Use
  Company Number: CH-ROCHE-408911

PATIENT
  Age: 59 Year
  Sex: Female

DRUGS (25)
  1. XENICAL [Suspect]
     Indication: DRUG USE FOR UNKNOWN INDICATION
     Dosage: THERAPY DURATION REPORTED AS 'LONG TERM'
     Route: 048
  2. OMEPRAZOLE [Suspect]
     Indication: DRUG USE FOR UNKNOWN INDICATION
     Dosage: THERAPY DURATION REPORTED AS LONG TERM TRADE NAME WAS REPORTED AS ANTRA 20
     Route: 048
  3. ZOCOR [Suspect]
     Indication: DRUG USE FOR UNKNOWN INDICATION
     Dosage: THERAPY DURATION OF USE REPORTED AS LONG TERM TRADE NAME REPORTED AS ZOCOR 20MG
     Route: 048
  4. CIPRALEX [Suspect]
     Indication: DRUG USE FOR UNKNOWN INDICATION
     Dosage: THERAPY DURATION REPORTED AS LONG TERM
     Route: 048
  5. ASPIRIN CARDIO 300 [Suspect]
     Indication: DRUG USE FOR UNKNOWN INDICATION
     Dosage: THERAPY DURATION REPORTED AS LONG TERM DOSEFORM REPORTED AS FILM COATED TABLETS
     Route: 048
  6. SINTROM MITIS [Suspect]
     Indication: DRUG USE FOR UNKNOWN INDICATION
     Route: 048
     Dates: start: 20050225
  7. SINTROM MITIS [Suspect]
     Dosage: THERAPY DURATION REPORTED AS LONG TERM TRADE NAME REPORTED AS SINTROM 1 MITIS
     Route: 048
     Dates: end: 20050223
  8. SINTROM MITIS [Suspect]
     Dosage: DOSE DECREASED
     Route: 048
  9. FRAXIPARINE [Suspect]
     Indication: DRUG USE FOR UNKNOWN INDICATION
     Dosage: DOSE INCREASED TOTAL THERAPY DURATION REPORTED AS 39 DAYS
     Route: 058
     Dates: start: 20050221, end: 20050313
  10. FRAXIPARINE [Suspect]
     Route: 058
     Dates: start: 20050203, end: 20050220
  11. DAFLON [Concomitant]
     Route: 048
  12. XANAX [Concomitant]
     Route: 048
  13. DETROL [Concomitant]
     Dosage: DOSEFORM REPORTED AS FILM COATED TABLETS
     Route: 048
  14. CLONAZEPAM [Concomitant]
     Route: 048
  15. BENERVA [Concomitant]
     Route: 048
  16. BECOZYME C [Concomitant]
     Route: 048
  17. MADOPAR [Concomitant]
     Dosage: STRENGTH REPORTED AS 100MG/25MG
     Route: 048
  18. VITAMINE B6 [Concomitant]
     Route: 048
  19. ROHYPNOL [Concomitant]
     Dosage: DOSEFORM REPORTED AS FILM COATED TABLETS
     Route: 048
  20. DHEA [Concomitant]
     Route: 048
  21. EFFORTIL PLUS [Concomitant]
     Route: 048
  22. DUSPATALIN [Concomitant]
     Route: 048
  23. TILUR [Concomitant]
     Dosage: DOSEFORM REPORTED AS MEMBRANE CAPSULES
     Route: 048
  24. KAPANOL [Concomitant]
     Dosage: DOSEFORM REPORTED AS MEMBRANE CAPSULES
     Route: 048
  25. MORPHINE [Concomitant]
     Route: 048

REACTIONS (11)
  - BLOOD DISORDER [None]
  - CARDIAC PERFORATION [None]
  - CARDIAC TAMPONADE [None]
  - CARDIOGENIC SHOCK [None]
  - DRUG INTERACTION [None]
  - ELECTROMECHANICAL DISSOCIATION [None]
  - HEPATIC NECROSIS [None]
  - INTESTINAL ISCHAEMIA [None]
  - MULTI-ORGAN FAILURE [None]
  - PERICARDIAL HAEMORRHAGE [None]
  - RENAL FAILURE ACUTE [None]
